FAERS Safety Report 5207067-1 (Version None)
Quarter: 2007Q1

REPORT INFORMATION
  Report Type: 
  Country: None (occurrence: None)
  Receive Date: 20070112
  Receipt Date: 20070105
  Transmission Date: 20070707
  Serious: Yes (Other)
  Sender: FDA-Public Use
  Company Number: US-AMGEN-STX205902

PATIENT
  Sex: Female

DRUGS (3)
  1. ENBREL [Suspect]
     Indication: PSORIATIC ARTHROPATHY
     Route: 058
     Dates: start: 20060601
  2. ENBREL [Suspect]
     Indication: PSORIASIS
  3. IMURAN [Concomitant]
     Route: 065
     Dates: start: 20010101

REACTIONS (5)
  - ARTHRALGIA [None]
  - INJECTION SITE PAIN [None]
  - INJECTION SITE WARMTH [None]
  - RESUSCITATION [None]
  - STRIDOR [None]
